FAERS Safety Report 14311938 (Version 1)
Quarter: 2017Q4

REPORT INFORMATION
  Report Type: Spontaneous
  Country: PL (occurrence: PL)
  Receive Date: 20171221
  Receipt Date: 20171221
  Transmission Date: 20180321
  Serious: Yes (Hospitalization, Other)
  Sender: FDA-Public Use
  Company Number: PL-SUN PHARMACEUTICAL INDUSTRIES LTD-2017R1-152581

PATIENT
  Age: 62 Year
  Sex: Male

DRUGS (2)
  1. CLINDAMYCIN. [Suspect]
     Active Substance: CLINDAMYCIN
     Indication: BACILLUS INFECTION
     Dosage: 900 MG, TID
     Route: 042
  2. CLINDAMYCIN. [Suspect]
     Active Substance: CLINDAMYCIN
     Indication: BACILLUS INFECTION
     Dosage: 300 MG, QID
     Route: 048

REACTIONS (2)
  - Treatment failure [Unknown]
  - Drug resistance [Unknown]
